FAERS Safety Report 7675318-X (Version None)
Quarter: 2011Q3

REPORT INFORMATION
  Report Type: 
  Country: None (occurrence: None)
  Receive Date: 20110810
  Receipt Date: 20110808
  Transmission Date: 20111222
  Serious: Yes (Hospitalization, Other)
  Sender: FDA-Public Use
  Company Number: BR-ABBOTT-11P-020-0842799-00

PATIENT
  Sex: Male

DRUGS (2)
  1. COMBINED FORMULA [Concomitant]
     Indication: PRODUCT USED FOR UNKNOWN INDICATION
     Dosage: 1 IN THE MORNING AND 1 AT NIGHT
  2. HUMIRA [Suspect]
     Indication: PRODUCT USED FOR UNKNOWN INDICATION
     Dates: start: 20110324

REACTIONS (3)
  - ARTHRALGIA [None]
  - RHEUMATOID ARTHRITIS [None]
  - OSTEOARTHRITIS [None]
